FAERS Safety Report 9069672 (Version 2)
Quarter: 2013Q2

REPORT INFORMATION
  Report Type: Report from Study
  Country: DE (occurrence: DE)
  Receive Date: 20130215
  Receipt Date: 20130606
  Transmission Date: 20140414
  Serious: Yes (Other)
  Sender: FDA-Public Use
  Company Number: DE-OTSUKA-EU-2011-10240

PATIENT
  Sex: Female
  Weight: 74 kg

DRUGS (21)
  1. SAMSCA [Suspect]
     Indication: INAPPROPRIATE ANTIDIURETIC HORMONE SECRETION
     Dosage: 15 MG MILLIGRAM(S), DAILY DOSE
     Route: 048
     Dates: start: 20101129, end: 20110930
  2. SAMSCA [Suspect]
     Dosage: 15 MG MILLIGRAM(S), QOD
     Route: 048
     Dates: start: 20111001, end: 20120118
  3. SAMSCA [Suspect]
     Dosage: 15 MG MILLIGRAM(S), UNKNOWN
     Route: 048
     Dates: start: 20120119, end: 20120401
  4. SAMSCA [Suspect]
     Dosage: 15 MG MILLIGRAM(S), QOD
     Route: 048
     Dates: start: 20120402, end: 20121126
  5. SAMSCA [Suspect]
     Dosage: 15 MG MILLIGRAM(S), UNK
     Dates: start: 20121127
  6. BISOPROLOL [Concomitant]
     Indication: HYPERTENSION
     Dosage: 10 MG MILLIGRAM(S), DAILY DOSE
     Route: 048
  7. SIMVASTATIN [Concomitant]
     Indication: ARTERIOSCLEROSIS
     Dosage: 20 MG MILLIGRAM(S), DAILY DOSE
     Route: 048
  8. RAMIPRIL [Concomitant]
     Indication: HYPERTENSION
     Dosage: 5 MG MILLIGRAM(S), DAILY DOSE
     Route: 048
     Dates: end: 20101121
  9. RAMIPRIL [Concomitant]
     Dosage: 10 MG MILLIGRAM(S), DAILY DOSE
     Route: 048
     Dates: start: 20111122
  10. FOSAMAX [Concomitant]
     Indication: OSTEOPOROSIS
     Dosage: 70 MG MILLIGRAM(S), QW
     Route: 048
     Dates: start: 20101204, end: 20120119
  11. CHOLECALCIFEROL [Concomitant]
     Indication: OSTEOPOROSIS
     Dosage: 2000 IU, DAILY DOSE
     Route: 048
     Dates: start: 20101204, end: 20110930
  12. PHENPROCOUMON [Concomitant]
     Indication: ATRIAL FIBRILLATION
     Dosage: UNK, UNKNOWN
     Route: 048
     Dates: end: 201201
  13. MUTAFLOR [Concomitant]
     Dosage: 1 DF DOSAGE FORM, DAILY DOSE
     Route: 048
     Dates: start: 20101118, end: 20101203
  14. DIGITOXIN [Concomitant]
     Indication: ATRIAL FIBRILLATION
     Dosage: 0.07 MG MILLIGRAM(S), DAILY DOSE
     Route: 048
     Dates: start: 201101
  15. ASS [Concomitant]
     Indication: ARTERIOSCLEROSIS
     Dosage: 100 MG MILLIGRAM(S), DAILY DOSE
     Route: 048
     Dates: start: 201201
  16. CALCIUM WITH VITAMIN D3 [Concomitant]
     Indication: OSTEOPOROSIS
     Dosage: 1 DF DOSAGE FORM, DAILY DOSE
     Route: 048
     Dates: start: 20110930, end: 2012
  17. AMLODIPIN [Concomitant]
     Indication: HYPERTENSION
     Dosage: 5 MG MILLIGRAM(S), DAILY DOSE
     Route: 048
     Dates: start: 201101
  18. TORASEMIDE [Concomitant]
     Indication: HYPERTENSION
     Dosage: 5 MG MILLIGRAM(S), DAILY DOSE
     Route: 048
     Dates: start: 201101, end: 20110215
  19. ALENDRON [Concomitant]
     Indication: OSTEOPOROSIS
     Dosage: 70 MG MILLIGRAM(S), QW
     Route: 048
     Dates: start: 201202
  20. VIGANTOLETTEN [Concomitant]
     Indication: OSTEOPOROSIS
     Dosage: 1 DF DOSAGE FORM, DAILY DOSE
     Route: 048
     Dates: start: 2012
  21. OMEPRAZOLE [Concomitant]
     Indication: DYSPEPSIA
     Dosage: 20 MG MILLIGRAM(S), DAILY DOSE
     Route: 048
     Dates: start: 2012

REACTIONS (17)
  - Tachyarrhythmia [Recovered/Resolved]
  - International normalised ratio increased [Recovered/Resolved]
  - Pneumonia [Recovered/Resolved]
  - Pyrexia [Recovered/Resolved]
  - Insomnia [Recovered/Resolved]
  - Tachycardia [Recovered/Resolved]
  - Dyspepsia [Recovering/Resolving]
  - Dizziness [Recovering/Resolving]
  - Decreased appetite [Recovering/Resolving]
  - Nocturia [Unknown]
  - Red blood cell sedimentation rate increased [Not Recovered/Not Resolved]
  - C-reactive protein increased [Unknown]
  - Prothrombin time prolonged [Recovered/Resolved]
  - Back pain [Recovered/Resolved]
  - Pain in extremity [Recovered/Resolved]
  - Arthralgia [Recovered/Resolved]
  - Respiratory distress [Recovered/Resolved]
